FAERS Safety Report 21035247 (Version 1)
Quarter: 2022Q3

REPORT INFORMATION
  Report Type: Spontaneous
  Country: US (occurrence: None)
  Receive Date: 20220701
  Receipt Date: 20220701
  Transmission Date: 20221027
  Serious: Yes (Hospitalization)
  Sender: FDA-Public Use
  Company Number: None

PATIENT
  Sex: Female

DRUGS (5)
  1. BOTOX [Suspect]
     Active Substance: ONABOTULINUMTOXINA
     Indication: Migraine
     Dosage: OTHER QUANTITY : 200 UNIT;?OTHER FREQUENCY : EVERY 12 WEEKS;?INJECT 155 UNITS IN THE MUSCLE TO THE H
     Route: 058
     Dates: start: 20180619
  2. BOTOX [Suspect]
     Active Substance: ONABOTULINUMTOXINA
     Dosage: OTHER QUANTITY : 155 UNITS;?OTHER FREQUENCY : EVERY 12 WEEKS;?
     Route: 058
  3. CUVITRU [Concomitant]
     Active Substance: HUMAN IMMUNOGLOBULIN G
  4. DICLOFENAC [Concomitant]
     Active Substance: DICLOFENAC
  5. DUPIXENT [Concomitant]
     Active Substance: DUPILUMAB

REACTIONS (2)
  - COVID-19 [None]
  - Gastrointestinal infection [None]
